FAERS Safety Report 9308878 (Version 2)
Quarter: 2013Q2

REPORT INFORMATION
  Report Type: Spontaneous
  Country: JP (occurrence: JP)
  Receive Date: 20130524
  Receipt Date: 20130607
  Transmission Date: 20140414
  Serious: Yes (Other)
  Sender: FDA-Public Use
  Company Number: JP-PFIZER INC-2013159709

PATIENT
  Age: 81 Year
  Sex: Female

DRUGS (1)
  1. CELECOX [Suspect]
     Indication: BACK PAIN
     Dosage: 200 MG, AS NEEDED
     Route: 048
     Dates: start: 20130202

REACTIONS (1)
  - Shunt thrombosis [Recovered/Resolved]
